FAERS Safety Report 7420704-6 (Version None)
Quarter: 2011Q2

REPORT INFORMATION
  Report Type: 
  Country: None (occurrence: None)
  Receive Date: 20110418
  Receipt Date: 20101118
  Transmission Date: 20111010
  Serious: Yes (Hospitalization, Other)
  Sender: FDA-Public Use
  Company Number: US-BAYER-201022348NA

PATIENT
  Age: 30 Year
  Sex: Female
  Weight: 104 kg

DRUGS (12)
  1. CLOMID [Concomitant]
  2. YAZ [Suspect]
     Indication: PREMENSTRUAL SYNDROME
     Dosage: UNK
     Route: 048
     Dates: start: 20070529, end: 20070725
  3. YAZ [Suspect]
  4. PERCOCET [Concomitant]
  5. ADVAIR DISKUS 100/50 [Concomitant]
     Indication: ASTHMA
  6. MOTRIN [Concomitant]
  7. SINGULAIR [Concomitant]
     Indication: ASTHMA
     Dosage: DAILY DOSE 10 MG
     Route: 048
  8. METFORMIN [Concomitant]
  9. PROVENTIL-HFA [Concomitant]
  10. LEXAPRO [Concomitant]
     Indication: DEPRESSION
     Dosage: DAILY DOSE 20 MG
     Route: 048
  11. PROZAC [Concomitant]
  12. ALESSE [Concomitant]

REACTIONS (4)
  - PULMONARY EMBOLISM [None]
  - DEEP VEIN THROMBOSIS [None]
  - ANXIETY [None]
  - DEPRESSION [None]
